FAERS Safety Report 7359423-3 (Version None)
Quarter: 2011Q1

REPORT INFORMATION
  Report Type: 
  Country: None (occurrence: None)
  Receive Date: 20110317
  Receipt Date: 20091217
  Transmission Date: 20110831
  Serious: No
  Sender: FDA-Public Use
  Company Number: US-PFIZER INC-2009312446

PATIENT
  Sex: Female

DRUGS (4)
  1. MONTELUKAST SODIUM [Concomitant]
  2. AMLODIPINE BESYLATE [Suspect]
     Dosage: 10 MG, 1X/DAY
     Route: 048
     Dates: start: 20091201
  3. ALLEGRA [Concomitant]
  4. TETRACYCLINE HYDROCHLORIDE [Concomitant]

REACTIONS (1)
  - DIZZINESS [None]
